FAERS Safety Report 8583700-1 (Version None)
Quarter: 2012Q3

REPORT INFORMATION
  Report Type: 
  Country: None (occurrence: None)
  Receive Date: 20120809
  Receipt Date: 20120717
  Transmission Date: 20120928
  Serious: Yes (Other)
  Sender: FDA-Public Use
  Company Number: JP-009507513-1207JPN000106

PATIENT

DRUGS (24)
  1. PEG-INTRON [Suspect]
     Indication: HEPATITIS C
     Dosage: 1.5MCG/KG/WEEK
     Route: 058
     Dates: start: 20120221, end: 20120520
  2. PROMAC (NITROFURANTOIN) [Concomitant]
     Dosage: 150 MG, QD
     Route: 048
     Dates: start: 20120417
  3. [THERAPY UNSPECIFIED] [Concomitant]
     Dosage: UNK
     Route: 061
     Dates: start: 20120410
  4. CLOBETASOL PROPIONATE [Concomitant]
     Route: 061
     Dates: start: 20120502
  5. ALLOPURINOL [Suspect]
     Indication: ADVERSE EVENT
     Dosage: 200 MG, QD
     Route: 048
     Dates: start: 20120223
  6. OLOPATADINE HCL [Concomitant]
     Dosage: 10 MG, QD
     Route: 048
     Dates: start: 20120502
  7. RINDERON V [Concomitant]
     Route: 061
     Dates: start: 20120502
  8. ANTEBATE [Concomitant]
     Route: 061
     Dates: start: 20120410
  9. TELAVIC [Suspect]
     Indication: HEPATITIS C
     Route: 048
     Dates: start: 20120221, end: 20120514
  10. ROXATIDINE ACETATE HCL [Concomitant]
     Dosage: 150 MG, QD
     Route: 048
     Dates: start: 20120417
  11. REBETOL [Suspect]
     Indication: HEPATITIS C
     Dosage: 800 MG, QD
     Route: 048
     Dates: start: 20120221, end: 20120520
  12. TELAPREVIR [Suspect]
     Indication: HEPATITIS C
     Dosage: 2250 MG, QD
     Route: 048
     Dates: start: 20120221, end: 20120514
  13. URSO 250 [Concomitant]
     Indication: HEPATITIS C
     Dosage: 600 MG, QD
     Route: 048
     Dates: end: 20120312
  14. ANTEBATE [Concomitant]
     Route: 061
     Dates: start: 20120410
  15. [THERAPY UNSPECIFIED] [Concomitant]
     Dosage: UNK
     Route: 061
     Dates: start: 20120410
  16. [THERAPY UNSPECIFIED] [Concomitant]
     Route: 051
     Dates: start: 20120502
  17. PROMAC (NITROFURANTOIN) [Concomitant]
     Dosage: 150 MG, ONCE
     Route: 048
     Dates: start: 20120417
  18. RINDERON V [Concomitant]
     Route: 061
     Dates: start: 20120502
  19. ALLOPURINOL [Suspect]
     Dosage: 100 MG, QD
     Route: 048
  20. ALLOPURINOL [Suspect]
  21. [THERAPY UNSPECIFIED] [Concomitant]
     Dosage: UNK
     Route: 061
     Dates: start: 20120502
  22. MARZULENE-S [Concomitant]
     Route: 048
     Dates: start: 20120417
  23. GASMOTIN [Concomitant]
     Dosage: 15 MG, QD
     Route: 048
     Dates: start: 20120417
  24. [THERAPY UNSPECIFIED] [Concomitant]
     Route: 051
     Dates: start: 20120508

REACTIONS (1)
  - DRUG ERUPTION [None]
